FAERS Safety Report 24687059 (Version 2)
Quarter: 2024Q4

REPORT INFORMATION
  Report Type: Spontaneous
  Country: US (occurrence: US)
  Receive Date: 20241202
  Receipt Date: 20241204
  Transmission Date: 20250115
  Serious: Yes (Other)
  Sender: PFIZER
  Company Number: US-PFIZER INC-PV202300152796

PATIENT
  Age: 77 Year
  Sex: Female

DRUGS (3)
  1. IBRANCE [Suspect]
     Active Substance: PALBOCICLIB
     Indication: Breast cancer metastatic
     Dosage: 125 MG, CYCLIC (DAILY FOR 21 DAYS WITH 7 DAYS OFF FOR A 28 DAY CYCLE)
     Route: 048
     Dates: start: 2023
  2. IBRANCE [Suspect]
     Active Substance: PALBOCICLIB
     Dosage: 100 MG, CYCLIC (1 TABLET DAILY FOR 21 DAYS, 7 DAYS OFF THEN REPEAT)
     Route: 048
     Dates: start: 2024
  3. IBRANCE [Suspect]
     Active Substance: PALBOCICLIB
     Dosage: 100 MG, DAILY (1 TAB DAILY)
     Route: 048

REACTIONS (1)
  - Neutropenia [Unknown]
